FAERS Safety Report 6770495-7 (Version None)
Quarter: 2010Q2

REPORT INFORMATION
  Report Type: 
  Country: None (occurrence: None)
  Receive Date: 20100615
  Receipt Date: 20100609
  Transmission Date: 20101027
  Serious: Yes (Other)
  Sender: FDA-Public Use
  Company Number: NL-BAYER-201027715GPV

PATIENT
  Age: 32 Year
  Sex: Female

DRUGS (3)
  1. BETAFERON [Suspect]
     Indication: DRUG USE FOR UNKNOWN INDICATION
     Dosage: AS USED: 250 ?G/ML
     Route: 058
     Dates: start: 20090326, end: 20100301
  2. BETAFERON [Suspect]
     Dosage: AS USED: 250 ?G/ML
     Route: 058
     Dates: start: 20100525
  3. SERTRALINE HCL [Concomitant]

REACTIONS (3)
  - RETINAL EXUDATES [None]
  - RETINOPATHY [None]
  - VISUAL IMPAIRMENT [None]
